FAERS Safety Report 15234473 (Version 1)
Quarter: 2018Q3

REPORT INFORMATION
  Report Type: Spontaneous
  Country: IT (occurrence: IT)
  Receive Date: 20180803
  Receipt Date: 20180803
  Transmission Date: 20181010
  Serious: No
  Sender: FDA-Public Use
  Company Number: IT-ALKEM LABORATORIES LIMITED-IT-ALKEM-2018-04837

PATIENT
  Sex: Male

DRUGS (1)
  1. FINASTERIDE. [Suspect]
     Active Substance: FINASTERIDE
     Indication: ANDROGENETIC ALOPECIA
     Dosage: UNK
     Route: 065

REACTIONS (15)
  - Disturbance in attention [Unknown]
  - Muscle spasms [Unknown]
  - Muscle atrophy [Unknown]
  - Penis disorder [Unknown]
  - Weight increased [Unknown]
  - Sensory loss [Unknown]
  - Anhedonia [Unknown]
  - Anxiety [Unknown]
  - Gynaecomastia [Unknown]
  - Penile size reduced [Unknown]
  - Hypotonia [Unknown]
  - Premature ejaculation [Unknown]
  - Muscle rigidity [Unknown]
  - Skin wrinkling [Unknown]
  - Ejaculation failure [Unknown]
